FAERS Safety Report 7491964-0 (Version None)
Quarter: 2011Q2

REPORT INFORMATION
  Report Type: 
  Country: None (occurrence: None)
  Receive Date: 20110518
  Receipt Date: 20110518
  Transmission Date: 20111010
  Serious: Yes (Other)
  Sender: FDA-Public Use
  Company Number: None

PATIENT
  Age: 34 Year
  Sex: Female
  Weight: 68.2 kg

DRUGS (1)
  1. FLUOXETINE [Suspect]
     Dosage: 10 MG DAILY - IN MORNING BY MOUTH
     Route: 048
     Dates: start: 20110506, end: 20110516

REACTIONS (1)
  - DRUG HYPERSENSITIVITY [None]
